FAERS Safety Report 8583491 (Version 3)
Quarter: 2014Q3

REPORT INFORMATION
  Report Type: Spontaneous
  Country: US (occurrence: US)
  Receive Date: 20120529
  Receipt Date: 20140903
  Transmission Date: 20150326
  Serious: Yes (Hospitalization)
  Sender: FDA-Public Use
  Company Number: US-BAYER-2012-051995

PATIENT
  Age: 29 Year
  Sex: Female
  Weight: 52.15 kg

DRUGS (6)
  1. SKELAXIN [Concomitant]
     Active Substance: METAXALONE
     Dosage: 800 MG, UNK
     Route: 048
     Dates: start: 20070203
  2. VALIUM [Concomitant]
     Active Substance: DIAZEPAM
     Dosage: UNK UNK, PRN
     Route: 048
     Dates: start: 20070508
  3. LIDODERM [Concomitant]
     Active Substance: LIDOCAINE
     Dosage: 5 %, UNK
     Route: 061
     Dates: start: 20070222
  4. YAZ [Suspect]
     Active Substance: DROSPIRENONE\ETHINYL ESTRADIOL
     Dosage: UNK
     Dates: start: 200611, end: 200705
  5. PAXIL [Concomitant]
     Active Substance: PAROXETINE HYDROCHLORIDE
     Dosage: 12.5 MG, UNK
     Route: 048
     Dates: start: 20070309
  6. AMBIEN [Concomitant]
     Active Substance: ZOLPIDEM TARTRATE
     Dosage: 12.5 MG, UNK
     Route: 048
     Dates: start: 20070321

REACTIONS (9)
  - Injury [Recovered/Resolved]
  - General physical health deterioration [Recovered/Resolved]
  - Emotional distress [None]
  - Chest pain [Recovered/Resolved]
  - Depression [None]
  - Pulmonary embolism [Recovered/Resolved]
  - Abdominal pain [None]
  - Anxiety [None]
  - Pain [None]

NARRATIVE: CASE EVENT DATE: 20070518
